FAERS Safety Report 4964531-8 (Version None)
Quarter: 2006Q2

REPORT INFORMATION
  Report Type: 
  Country: None (occurrence: None)
  Receive Date: 20060406
  Receipt Date: 20060203
  Transmission Date: 20061013
  Serious: Yes (Hospitalization)
  Sender: FDA-Public Use
  Company Number: JP-GLAXOSMITHKLINE-B0409013A

PATIENT
  Age: 37 Year
  Sex: Male

DRUGS (12)
  1. EPIVIR [Suspect]
     Indication: HIV INFECTION
     Dosage: 150MG TWICE PER DAY
     Route: 048
     Dates: start: 20040728
  2. COMBIVIR [Suspect]
     Indication: HIV INFECTION
     Dosage: 1TAB TWICE PER DAY
     Route: 048
     Dates: start: 20040630, end: 20040727
  3. KALETRA [Suspect]
     Indication: HIV INFECTION
     Dosage: 6CAP PER DAY
     Route: 048
     Dates: start: 20040630
  4. TENOFOVIR DISOPROXIL FUMARATE [Suspect]
     Indication: HIV INFECTION
     Dosage: 300MG PER DAY
     Route: 048
     Dates: start: 20040630, end: 20041216
  5. RETROVIR [Concomitant]
     Indication: ACQUIRED IMMUNODEFICIENCY SYNDROME
     Route: 048
     Dates: start: 20040728, end: 20040805
  6. VIDEX EC [Concomitant]
     Indication: ACQUIRED IMMUNODEFICIENCY SYNDROME
     Dosage: 250MG PER DAY
     Route: 048
     Dates: start: 20040528, end: 20040629
  7. ZIAGEN [Concomitant]
     Indication: ACQUIRED IMMUNODEFICIENCY SYNDROME
     Dosage: 300MG TWICE PER DAY
     Route: 048
     Dates: start: 20040528
  8. STOCRIN [Concomitant]
     Indication: ACQUIRED IMMUNODEFICIENCY SYNDROME
     Route: 048
     Dates: start: 20040528, end: 20040629
  9. CLOBAZAM [Concomitant]
     Indication: CONVULSION PROPHYLAXIS
     Dosage: 10MG PER DAY
     Route: 048
     Dates: start: 20040528, end: 20040716
  10. ZONISAMIDE [Concomitant]
     Indication: CONVULSION PROPHYLAXIS
     Route: 048
     Dates: start: 20040528
  11. ALTAT [Concomitant]
     Indication: GASTRITIS
     Dosage: 7.5MG PER DAY
     Route: 048
     Dates: start: 20040804, end: 20041222
  12. BAKTAR [Concomitant]
     Dosage: 1 PER DAY
     Route: 048
     Dates: start: 20040618, end: 20050317

REACTIONS (8)
  - GASTRITIS [None]
  - HYDRONEPHROSIS [None]
  - NAUSEA [None]
  - PROSTATIC ABSCESS [None]
  - PYELONEPHRITIS [None]
  - RENAL IMPAIRMENT [None]
  - URINARY RETENTION [None]
  - VOMITING [None]
